FAERS Safety Report 12285790 (Version 2)
Quarter: 2016Q2

REPORT INFORMATION
  Report Type: Spontaneous
  Country: IT (occurrence: IT)
  Receive Date: 20160420
  Receipt Date: 20160523
  Transmission Date: 20160815
  Serious: Yes (Disabling)
  Sender: FDA-Public Use
  Company Number: IT-009507513-1604ITA012806

PATIENT
  Age: 34 Year
  Sex: Male
  Weight: 83 kg

DRUGS (3)
  1. PROPECIA [Suspect]
     Active Substance: FINASTERIDE
     Indication: ANDROGENETIC ALOPECIA
     Dosage: 1 DOSE UNIT, DAILY
     Route: 048
     Dates: start: 2004, end: 2009
  2. SAW PALMETTO [Concomitant]
     Active Substance: SAW PALMETTO
  3. MINOXIDIL. [Concomitant]
     Active Substance: MINOXIDIL

REACTIONS (6)
  - Prostatic pain [Not Recovered/Not Resolved]
  - Erectile dysfunction [Not Recovered/Not Resolved]
  - Muscle atrophy [Not Recovered/Not Resolved]
  - Libido decreased [Not Recovered/Not Resolved]
  - Anhedonia [Not Recovered/Not Resolved]
  - Testicular pain [Not Recovered/Not Resolved]

NARRATIVE: CASE EVENT DATE: 2007
